FAERS Safety Report 21764926 (Version 17)
Quarter: 2024Q4

REPORT INFORMATION
  Report Type: Report from Study
  Country: CO (occurrence: CO)
  Receive Date: 20221222
  Receipt Date: 20241015
  Transmission Date: 20250114
  Serious: Yes (Other)
  Sender: ROCHE
  Company Number: CO-002147023-NVSC2022CO208196

PATIENT
  Age: 42 Year
  Sex: Female
  Weight: 89.0 kg

DRUGS (9)
  1. XOLAIR [Suspect]
     Active Substance: OMALIZUMAB
     Indication: Chronic spontaneous urticaria
     Route: 058
     Dates: start: 20220707
  2. XOLAIR [Suspect]
     Active Substance: OMALIZUMAB
     Indication: Idiopathic urticaria
     Route: 058
     Dates: start: 20221202
  3. XOLAIR [Suspect]
     Active Substance: OMALIZUMAB
     Route: 058
  4. XOLAIR [Suspect]
     Active Substance: OMALIZUMAB
     Route: 058
  5. XOLAIR [Suspect]
     Active Substance: OMALIZUMAB
     Route: 058
     Dates: start: 20230801, end: 202309
  6. XOLAIR [Suspect]
     Active Substance: OMALIZUMAB
     Route: 058
     Dates: start: 202208
  7. XOLAIR [Suspect]
     Active Substance: OMALIZUMAB
     Dosage: 300 MG, QMO
     Route: 058
     Dates: start: 20220101
  8. XOLAIR [Suspect]
     Active Substance: OMALIZUMAB
     Dosage: UNK
     Route: 058
     Dates: start: 2022
  9. XOLAIR [Suspect]
     Active Substance: OMALIZUMAB
     Route: 065
     Dates: start: 2022, end: 202402

REACTIONS (23)
  - Hyperthyroidism [Not Recovered/Not Resolved]
  - Feeling hot [Unknown]
  - Headache [Not Recovered/Not Resolved]
  - Viral infection [Unknown]
  - Weight increased [Unknown]
  - Urticaria [Not Recovered/Not Resolved]
  - Hypersensitivity [Unknown]
  - Illness [Unknown]
  - Inflammation [Unknown]
  - Erythema [Not Recovered/Not Resolved]
  - Dermatitis [Not Recovered/Not Resolved]
  - Thyroid disorder [Not Recovered/Not Resolved]
  - Malaise [Not Recovered/Not Resolved]
  - Measles [Unknown]
  - Insomnia [Unknown]
  - Feeling of despair [Unknown]
  - Product physical issue [Unknown]
  - Product supply issue [Unknown]
  - Product storage error [Unknown]
  - Product distribution issue [Unknown]
  - Off label use [Unknown]
  - Burning sensation [Unknown]
  - Scratch [Unknown]

NARRATIVE: CASE EVENT DATE: 20220901
